FAERS Safety Report 4422803-X (Version None)
Quarter: 2004Q3

REPORT INFORMATION
  Report Type: 
  Country: None (occurrence: None)
  Receive Date: 20040719
  Receipt Date: 20040210
  Transmission Date: 20050211
  Serious: Yes (Hospitalization, Other)
  Sender: FDA-Public Use
  Company Number: M04-INT-025

PATIENT
  Age: 54 Year
  Sex: Male

DRUGS (4)
  1. INTEGRILIN [Suspect]
     Indication: CORONARY ANGIOPLASTY
     Dosage: SEE IMAGE
  2. ACETYLSALICYLIC ACID SRT [Concomitant]
  3. CLOPIDOGREL (CLOPIDOGREL) [Concomitant]
  4. ENOXAPARIN SODIUM [Concomitant]

REACTIONS (1)
  - CATHETER SITE HAEMORRHAGE [None]
